FAERS Safety Report 7282628-7 (Version None)
Quarter: 2011Q1

REPORT INFORMATION
  Report Type: 
  Country: None (occurrence: None)
  Receive Date: 20110127
  Receipt Date: 20110120
  Transmission Date: 20110831
  Serious: Yes (Other)
  Sender: FDA-Public Use
  Company Number: CIP11000122

PATIENT
  Sex: Female

DRUGS (3)
  1. ACTONEL [Suspect]
     Dosage: ORAL
     Route: 048
     Dates: start: 20050801, end: 20060801
  2. FOSAMAX [Suspect]
     Dosage: ORAL
     Route: 048
     Dates: start: 20040201, end: 20050801
  3. BONIVA [Suspect]
     Dates: start: 20060801, end: 20100101

REACTIONS (6)
  - PAIN [None]
  - MULTIPLE INJURIES [None]
  - FEMUR FRACTURE [None]
  - LOW TURNOVER OSTEOPATHY [None]
  - STRESS FRACTURE [None]
  - BONE DISORDER [None]
